FAERS Safety Report 11790093 (Version 2)
Quarter: 2015Q4

REPORT INFORMATION
  Report Type: Report from Study
  Country: ES (occurrence: ES)
  Receive Date: 20151201
  Receipt Date: 20151203
  Transmission Date: 20160305
  Serious: Yes (Disabling, Other)
  Sender: FDA-Public Use
  Company Number: ES-AMGEN-ESPSL2015125984

PATIENT
  Sex: Female

DRUGS (4)
  1. PROLIA [Suspect]
     Active Substance: DENOSUMAB
     Indication: OSTEOPOROSIS
     Dosage: UNK
     Route: 065
     Dates: start: 2013
  2. HIDROFEROL [Concomitant]
     Active Substance: CALCIFEDIOL
     Dosage: ONE DOSE EVERY ONE MONTH
  3. VITAMIN D                          /00107901/ [Concomitant]
     Active Substance: ERGOCALCIFEROL
     Dosage: 1 DOSE EVERY MONTH QMO
  4. CALCIUM [Concomitant]
     Active Substance: CALCIUM

REACTIONS (6)
  - Fatigue [Recovered/Resolved]
  - No therapeutic response [Unknown]
  - Blood calcium decreased [Unknown]
  - Back pain [Recovered/Resolved]
  - Pyrexia [Recovered/Resolved]
  - Spinal compression fracture [Recovered/Resolved]
